FAERS Safety Report 4975905-3 (Version None)
Quarter: 2006Q2

REPORT INFORMATION
  Report Type: 
  Country: None (occurrence: None)
  Receive Date: 20060411
  Receipt Date: 20060331
  Transmission Date: 20061013
  Serious: Yes (Death)
  Sender: FDA-Public Use
  Company Number: 163-21880-06030789

PATIENT
  Age: 80 Year
  Sex: Male

DRUGS (1)
  1. REVLIMID [Suspect]
     Indication: MYELODYSPLASTIC SYNDROME
     Dosage: 10 MG, DAILY; ORAL
     Route: 048
     Dates: start: 20060304, end: 20060324

REACTIONS (6)
  - ANOREXIA [None]
  - FATIGUE [None]
  - MALAISE [None]
  - PETECHIAE [None]
  - PYREXIA [None]
  - RASH [None]
